FAERS Safety Report 6372468-5 (Version None)
Quarter: 2009Q3

REPORT INFORMATION
  Report Type: 
  Country: None (occurrence: None)
  Receive Date: 20090924
  Receipt Date: 20080814
  Transmission Date: 20100115
  Serious: Yes (Other)
  Sender: FDA-Public Use
  Company Number: US-ASTRAZENECA-2008UW16175

PATIENT
  Age: 16047 Day
  Sex: Female
  Weight: 66.2 kg

DRUGS (6)
  1. SEROQUEL [Suspect]
     Indication: BIPOLAR DISORDER
     Route: 048
     Dates: start: 20040123, end: 20060322
  2. ABILIFY [Concomitant]
     Dates: start: 20070701
  3. HALDOL [Concomitant]
  4. RISPERDAL [Concomitant]
  5. THORAZINE [Concomitant]
  6. ZYPREXA [Concomitant]
     Dosage: 2.5-20MG
     Dates: start: 19980622, end: 20011005

REACTIONS (6)
  - DEPRESSION [None]
  - EMOTIONAL DISTRESS [None]
  - INSOMNIA [None]
  - PAIN IN EXTREMITY [None]
  - PANCREATITIS [None]
  - STRESS [None]
